FAERS Safety Report 5996461-7 (Version None)
Quarter: 2008Q4

REPORT INFORMATION
  Report Type: 
  Country: None (occurrence: None)
  Receive Date: 20081212
  Receipt Date: 20081014
  Transmission Date: 20090506
  Serious: No
  Sender: FDA-Public Use
  Company Number: US-ABBOTT-08P-163-0481708-00

PATIENT
  Sex: Female
  Weight: 55.842 kg

DRUGS (10)
  1. HUMIRA [Suspect]
     Indication: PSORIASIS
     Route: 050
     Dates: start: 20070501, end: 20070701
  2. HUMIRA [Suspect]
     Indication: PSORIATIC ARTHROPATHY
     Route: 050
     Dates: start: 20080101
  3. LEVOTHYROXINE SODIUM [Suspect]
     Indication: HYPOTHYROIDISM
     Route: 048
     Dates: start: 19880101
  4. PEROXITANE [Concomitant]
     Indication: ANXIETY
     Dates: start: 20030101
  5. CONJUGATED ESTROGENS [Concomitant]
     Indication: HYSTERECTOMY
     Dates: start: 19970101
  6. CONJUGATED ESTROGENS [Concomitant]
     Indication: MENOPAUSE
  7. CONJUGATED ESTROGENS [Concomitant]
     Indication: HORMONE REPLACEMENT THERAPY
  8. CLOXACILLIN SODIUM [Concomitant]
     Indication: PSORIASIS
     Route: 061
  9. PSORIATANE [Concomitant]
     Indication: PSORIASIS
     Dates: start: 20030101
  10. METHOXSALEN [Concomitant]
     Indication: PSORIASIS
     Route: 048
     Dates: start: 20030101

REACTIONS (4)
  - BLISTER [None]
  - INJECTION SITE REACTION [None]
  - PRURITUS [None]
  - PSORIASIS [None]
